FAERS Safety Report 18478009 (Version 2)
Quarter: 2021Q3

REPORT INFORMATION
  Report Type: Other
  Country: KR (occurrence: KR)
  Receive Date: 20201108
  Receipt Date: 20210715
  Transmission Date: 20211014
  Serious: Yes (Other)
  Sender: FDA-Public Use
  Company Number: KR-ROCHE-2708634

PATIENT
  Age: 81 Year
  Sex: Female

DRUGS (5)
  1. TARGIN PR [Concomitant]
     Indication: NON-SMALL CELL LUNG CANCER
     Dosage: 5/2.5MG
     Route: 048
     Dates: start: 20181206, end: 20190102
  2. ALECTINIB. [Suspect]
     Active Substance: ALECTINIB
     Indication: NON-SMALL CELL LUNG CANCER METASTATIC
     Route: 048
     Dates: start: 20181206
  3. LASIX [Concomitant]
     Active Substance: FUROSEMIDE
     Indication: PLEURAL EFFUSION
     Route: 048
     Dates: start: 20190131, end: 20190327
  4. MYPOL (SOUTH KOREA) [Concomitant]
     Indication: NON-SMALL CELL LUNG CANCER
     Route: 048
     Dates: start: 20190425, end: 20190509
  5. LASIX [Concomitant]
     Active Substance: FUROSEMIDE
     Route: 048
     Dates: start: 20190328, end: 20190424

REACTIONS (5)
  - Pruritus [Recovering/Resolving]
  - Oedema [Recovering/Resolving]
  - Blood urea increased [Recovered/Resolved]
  - Azotaemia [Recovering/Resolving]
  - Rash [Recovered/Resolved]

NARRATIVE: CASE EVENT DATE: 20190228
